FAERS Safety Report 9581366 (Version 1)
Quarter: 2013Q4

REPORT INFORMATION
  Report Type: Spontaneous
  Country: FR (occurrence: FR)
  Receive Date: 20131002
  Receipt Date: 20131002
  Transmission Date: 20140711
  Serious: Yes (Life-Threatening, Hospitalization)
  Sender: FDA-Public Use
  Company Number: FR-GLAXOSMITHKLINE-B0924807A

PATIENT
  Age: 17 Year
  Sex: Male

DRUGS (8)
  1. TRACRIUM [Suspect]
     Indication: ANAESTHESIA
     Route: 042
     Dates: start: 20130628, end: 20130628
  2. PROPOFOL [Suspect]
     Indication: ANAESTHESIA
     Route: 042
     Dates: start: 20130628, end: 20130628
  3. INNOHEP [Suspect]
     Route: 042
     Dates: start: 20130628, end: 20130628
  4. SUFENTANIL [Suspect]
     Indication: ANAESTHESIA
     Route: 042
     Dates: start: 20130628, end: 20130628
  5. SALBUTAMOL [Suspect]
     Indication: BRONCHOSPASM
     Route: 055
     Dates: start: 20130628, end: 20130628
  6. ADRENALINE [Suspect]
     Indication: BRONCHOSPASM
     Route: 055
     Dates: start: 20130628, end: 20130628
  7. LASILIX [Concomitant]
  8. OXYGEN THERAPY [Concomitant]

REACTIONS (13)
  - Bronchospasm [Recovered/Resolved]
  - Cardiogenic shock [Recovered/Resolved]
  - Acute pulmonary oedema [Recovered/Resolved]
  - Cough [Unknown]
  - Haemoptysis [Unknown]
  - Tachycardia [Unknown]
  - Rales [Unknown]
  - Interstitial lung disease [Unknown]
  - Asthenia [Unknown]
  - Haematemesis [Unknown]
  - Mitral valve incompetence [Unknown]
  - Respiratory distress [Unknown]
  - Stress cardiomyopathy [Unknown]
